FAERS Safety Report 4773249-6 (Version None)
Quarter: 2005Q3

REPORT INFORMATION
  Report Type: 
  Country: None (occurrence: None)
  Receive Date: 20050916
  Receipt Date: 20050906
  Transmission Date: 20060218
  Serious: Yes (Hospitalization)
  Sender: FDA-Public Use
  Company Number: B0392852A

PATIENT
  Age: 40 Year
  Sex: Male

DRUGS (3)
  1. EPIVIR [Suspect]
     Indication: HIV INFECTION
  2. STAVUDINE [Suspect]
     Indication: HIV INFECTION
  3. EFAVIRENZ [Suspect]
     Indication: HIV INFECTION

REACTIONS (4)
  - DISEASE RECURRENCE [None]
  - ERYTHEMA [None]
  - MYCOBACTERIUM AVIUM COMPLEX INFECTION [None]
  - SKIN LESION [None]
